FAERS Safety Report 7813218-2 (Version None)
Quarter: 2011Q4

REPORT INFORMATION
  Report Type: 
  Country: None (occurrence: None)
  Receive Date: 20111013
  Receipt Date: 20110930
  Transmission Date: 20120403
  Serious: Yes (Hospitalization, Other)
  Sender: FDA-Public Use
  Company Number: US-BAYER-201026649NA

PATIENT
  Age: 21 Year
  Sex: Female

DRUGS (2)
  1. YAZ [Suspect]
     Indication: MENSTRUAL CYCLE MANAGEMENT
  2. YAZ [Suspect]
     Indication: ACNE
     Dosage: UNK UNK, UNK
     Route: 048
     Dates: start: 20071201, end: 20080502

REACTIONS (11)
  - CHEST PAIN [None]
  - PULMONARY NECROSIS [None]
  - PULMONARY INFARCTION [None]
  - RIGHT VENTRICULAR DYSFUNCTION [None]
  - DYSPNOEA [None]
  - TRAUMATIC LUNG INJURY [None]
  - PAIN [None]
  - PULMONARY EMBOLISM [None]
  - STRESS [None]
  - DEEP VEIN THROMBOSIS [None]
  - PULMONARY ARTERY THROMBOSIS [None]
